FAERS Safety Report 8282477-7 (Version None)
Quarter: 2012Q2

REPORT INFORMATION
  Report Type: 
  Country: None (occurrence: None)
  Receive Date: 20120413
  Receipt Date: 20120402
  Transmission Date: 20120825
  Serious: Yes (Hospitalization)
  Sender: FDA-Public Use
  Company Number: CH-SANOFI-AVENTIS-2012SA022573

PATIENT
  Age: 65 Year
  Sex: Female

DRUGS (12)
  1. MULTAQ [Suspect]
     Indication: ATRIAL FIBRILLATION
     Route: 048
     Dates: start: 20120126, end: 20120204
  2. PREDNISOLONE [Concomitant]
  3. MARCUMAR [Concomitant]
     Dosage: FREQUENCY: ACCORDING TO INR
  4. ESOMEPRAZOLE MAGNESIUM [Concomitant]
  5. CITALOPRAM HYDROBROMIDE [Concomitant]
  6. SEROQUEL [Concomitant]
  7. MOXONIDINE [Concomitant]
     Indication: HYPERTENSION
  8. PRAVASTATIN [Concomitant]
  9. PULMICORT [Concomitant]
     Dosage: DOSE: 400 TH DOSE:400 UNIT(S)
  10. METOPROLOL TARTRATE AND HYDROCHLOROTHIAZIDE [Concomitant]
  11. AMLODIPINE BESYLATE [Concomitant]
  12. ACETAMINOPHEN [Concomitant]

REACTIONS (3)
  - WEIGHT INCREASED [None]
  - OEDEMA [None]
  - RENAL FAILURE [None]
